FAERS Safety Report 12094405 (Version 1)
Quarter: 2016Q1

REPORT INFORMATION
  Report Type: Spontaneous
  Country: FR (occurrence: FR)
  Receive Date: 20160219
  Receipt Date: 20160219
  Transmission Date: 20160526
  Serious: Yes (Death, Hospitalization)
  Sender: FDA-Public Use
  Company Number: FR-SA-2016SA029216

PATIENT
  Age: 94 Year
  Sex: Female

DRUGS (12)
  1. PYOSTACINE [Suspect]
     Active Substance: PRISTINAMYCIN
     Indication: LUNG DISORDER
     Route: 048
     Dates: start: 201508
  2. LASILIX [Suspect]
     Active Substance: FUROSEMIDE
     Indication: ACUTE RESPIRATORY FAILURE
     Route: 048
     Dates: start: 20150811, end: 20150817
  3. JOSACINE [Suspect]
     Active Substance: JOSAMYCIN
     Indication: LUNG DISORDER
     Route: 048
     Dates: start: 201508
  4. PRAVASTATIN [Concomitant]
     Active Substance: PRAVASTATIN\PRAVASTATIN SODIUM
  5. LEVOTHYROX [Concomitant]
     Active Substance: LEVOTHYROXINE
  6. HYDROCHLOROTHIAZIDE. [Suspect]
     Active Substance: HYDROCHLOROTHIAZIDE
     Indication: HYPERTENSION
     Route: 048
     Dates: end: 20150817
  7. XARELTO [Concomitant]
     Active Substance: RIVAROXABAN
  8. MIANSERIN [Concomitant]
     Active Substance: MIANSERIN
  9. TRAVATAN [Concomitant]
     Active Substance: TRAVOPROST
  10. ROCEPHINE [Suspect]
     Active Substance: CEFTRIAXONE SODIUM
     Indication: LUNG DISORDER
     Route: 065
     Dates: start: 20150811, end: 20150817
  11. IRBESARTAN. [Suspect]
     Active Substance: IRBESARTAN
     Indication: HYPERTENSION
     Route: 048
     Dates: end: 20150817
  12. AZOPT [Concomitant]
     Active Substance: BRINZOLAMIDE

REACTIONS (1)
  - Hyponatraemia [Recovering/Resolving]

NARRATIVE: CASE EVENT DATE: 20150812
